FAERS Safety Report 8435482-1 (Version None)
Quarter: 2012Q2

REPORT INFORMATION
  Report Type: 
  Country: None (occurrence: None)
  Receive Date: 20120614
  Receipt Date: 20120606
  Transmission Date: 20120825
  Serious: Yes (Hospitalization)
  Sender: FDA-Public Use
  Company Number: US-BAYER-2012-019553

PATIENT
  Age: 38 Year
  Sex: Female
  Weight: 77.098 kg

DRUGS (15)
  1. YAZ [Suspect]
     Indication: PRODUCT USED FOR UNKNOWN INDICATION
     Dosage: UNK
     Dates: start: 20080109, end: 20100204
  2. YAZ [Suspect]
     Indication: CONTRACEPTION
  3. MIRALAX [Concomitant]
     Dosage: 17 G, DAILY
     Route: 048
  4. METHYLPREDNISOLONE [Concomitant]
     Dosage: 4 MG, UNK
     Dates: start: 20091223
  5. LORTAB [Concomitant]
     Dosage: 500 MG, UNK
  6. AZITHROMYCIN [Concomitant]
     Dosage: 250 MG
     Dates: start: 20100110
  7. YAZ [Suspect]
     Indication: ACNE
  8. PROTONIX [Concomitant]
     Dosage: UNK
     Dates: start: 20091223
  9. HYDROCODONE BITARTRATE AND ACETAMINOPHEN [Concomitant]
     Indication: PAIN
     Dosage: 10 MG, 1 TABLET EVERY 6 HOURS
     Route: 048
     Dates: start: 20091223
  10. HYDROCODONE BITARTRATE AND ACETAMINOPHEN [Concomitant]
     Dosage: 500 MG, 1 TABLET EVERY 6 HOURS
     Route: 048
     Dates: start: 20091223
  11. METHYLPREDNISOLONE [Concomitant]
     Indication: SPINAL OSTEOARTHRITIS
     Dosage: 40 MG, UNK
     Dates: start: 20091029
  12. NEXIUM [Concomitant]
     Dosage: 40 MG, ONE CAPSULE DAILY
     Route: 048
     Dates: start: 20100110
  13. AZITHROMYCIN [Concomitant]
     Dosage: 250 MG, TAKE TWO TABLETS AT ONCE TODAY, THEN ONE TABLET DAILY
     Dates: start: 20091124
  14. ADDERALL 5 [Concomitant]
     Indication: NARCOLEPSY
     Dosage: UNK
     Dates: start: 20080101, end: 20120101
  15. MARCAINE [Concomitant]
     Indication: SPINAL OSTEOARTHRITIS
     Dosage: 2 ML, UNK
     Dates: start: 20091029

REACTIONS (3)
  - CHOLECYSTECTOMY [None]
  - CHOLECYSTITIS CHRONIC [None]
  - PAIN [None]
